FAERS Safety Report 8112100-3 (Version None)
Quarter: 2011Q4

REPORT INFORMATION
  Report Type: 
  Country: None (occurrence: None)
  Receive Date: 20111223
  Receipt Date: 20101213
  Transmission Date: 20120403
  Serious: Yes (Disabling)
  Sender: FDA-Public Use
  Company Number: PHHY2010US77797

PATIENT
  Age: 57 Year
  Sex: Female
  Weight: 92 kg

DRUGS (2)
  1. ARIMIDEX [Concomitant]
  2. FEMARA [Suspect]
     Indication: BREAST CANCER
     Dosage: 2.5 MG DAILY, ORAL
     Route: 048
     Dates: start: 20100818, end: 20101129

REACTIONS (1)
  - HEADACHE [None]
